FAERS Safety Report 7556991-3 (Version None)
Quarter: 2011Q2

REPORT INFORMATION
  Report Type: 
  Country: None (occurrence: None)
  Receive Date: 20110620
  Receipt Date: 20110614
  Transmission Date: 20111010
  Serious: Yes (Death)
  Sender: FDA-Public Use
  Company Number: PHBS2007BR16760

PATIENT
  Age: 25 Year
  Sex: Female
  Weight: 64 kg

DRUGS (16)
  1. FOLIC ACID [Concomitant]
  2. NARATRIPTAN [Concomitant]
     Indication: HEADACHE
  3. CLONAZEPAM [Concomitant]
  4. MORPHINE [Concomitant]
  5. SEROQUEL [Concomitant]
  6. PANTOPRAZOLE [Concomitant]
  7. ONDANSETRON HYDROCHLORIDE [Concomitant]
  8. VITAMIN B COMPLEX CAP [Concomitant]
  9. EXJADE [Suspect]
     Indication: IRON OVERLOAD
     Dosage: 2 DF, QD
     Route: 048
  10. ASPIRIN [Concomitant]
  11. DURAGESIC-100 [Concomitant]
     Indication: PAIN
  12. TANDRILAX [Concomitant]
     Indication: PAIN
  13. EXJADE [Suspect]
     Dosage: 3 DF, QD
     Route: 048
  14. DIMORF [Concomitant]
     Indication: PAIN
  15. DRAMIN B-6 [Concomitant]
  16. IMOVANE [Concomitant]

REACTIONS (3)
  - DENTAL CARIES [None]
  - PULMONARY EMBOLISM [None]
  - TOOTH EROSION [None]
